FAERS Safety Report 7181337-2 (Version None)
Quarter: 2010Q4

REPORT INFORMATION
  Report Type: 
  Country: None (occurrence: None)
  Receive Date: 20101221
  Receipt Date: 20100422
  Transmission Date: 20110411
  Serious: No
  Sender: FDA-Public Use
  Company Number: US-AMGEN-KDL407919

PATIENT

DRUGS (9)
  1. ENBREL [Suspect]
     Dosage: 50 MG, QWK
     Route: 058
  2. MELOXICAM [Concomitant]
     Dosage: 15 MG, UNK
  3. CAFFEINE [Concomitant]
  4. METFORMIN HCL [Concomitant]
     Dosage: 500 MG, UNK
  5. OMEPRAZOLE [Concomitant]
     Dosage: 40 MG, UNK
  6. HYDROXYCHLOROQUINE [Concomitant]
     Dosage: 200 MG, UNK
  7. MULTIPLE VITAMINS [Concomitant]
     Dosage: UNK UNK, UNK
  8. LOPERAMIDE HYDROCHLORIDE [Concomitant]
     Dosage: UNK UNK, UNK
  9. GLUCOSAMINE [Concomitant]
     Dosage: UNK UNK, UNK

REACTIONS (4)
  - ANXIETY [None]
  - DRY MOUTH [None]
  - DYSPNOEA [None]
  - INSOMNIA [None]
